FAERS Safety Report 12987964 (Version 3)
Quarter: 2017Q2

REPORT INFORMATION
  Report Type: Spontaneous
  Country: US (occurrence: US)
  Receive Date: 20161130
  Receipt Date: 20170530
  Transmission Date: 20170830
  Serious: Yes (Death)
  Sender: FDA-Public Use
  Company Number: US-CONCORDIA LABORATORIES INC.-PIN-2016-00060

PATIENT
  Age: 63 Year
  Sex: Female

DRUGS (17)
  1. RESTORIL [Concomitant]
     Active Substance: TEMAZEPAM
  2. PHOTOFRIN [Suspect]
     Active Substance: PORFIMER SODIUM
     Indication: NON-SMALL CELL LUNG CANCER
  3. LISINOPRIL. [Concomitant]
     Active Substance: LISINOPRIL
  4. NEURONTIN [Concomitant]
     Active Substance: GABAPENTIN
  5. COREG [Concomitant]
     Active Substance: CARVEDILOL
  6. DSS [Concomitant]
     Active Substance: DEXTRAN SULFATE SODIUM SALT
  7. LIPITOR [Concomitant]
     Active Substance: ATORVASTATIN CALCIUM
  8. XANAX [Concomitant]
     Active Substance: ALPRAZOLAM
  9. PROAIR HFA [Concomitant]
     Active Substance: ALBUTEROL SULFATE
  10. ZOFRAN [Concomitant]
     Active Substance: ONDANSETRON HYDROCHLORIDE
  11. ZYRTEC [Concomitant]
     Active Substance: CETIRIZINE HYDROCHLORIDE
  12. ADDERALL [Concomitant]
     Active Substance: AMPHETAMINE ASPARTATE\AMPHETAMINE SULFATE\DEXTROAMPHETAMINE SACCHARATE\DEXTROAMPHETAMINE SULFATE
  13. IMDUR [Concomitant]
     Active Substance: ISOSORBIDE MONONITRATE
  14. LASIX [Concomitant]
     Active Substance: FUROSEMIDE
  15. PROMETHAZINE [Concomitant]
     Active Substance: PROMETHAZINE\PROMETHAZINE HYDROCHLORIDE
  16. FLONASE [Concomitant]
     Active Substance: FLUTICASONE PROPIONATE
  17. MAGNESIUM OXIDE. [Concomitant]
     Active Substance: MAGNESIUM OXIDE

REACTIONS (1)
  - Respiratory failure [Fatal]

NARRATIVE: CASE EVENT DATE: 20161114
